FAERS Safety Report 9613183 (Version 1)
Quarter: 2013Q4

REPORT INFORMATION
  Report Type: Spontaneous
  Country: JP (occurrence: JP)
  Receive Date: 20131010
  Receipt Date: 20131010
  Transmission Date: 20140711
  Serious: Yes (Hospitalization, Other)
  Sender: FDA-Public Use
  Company Number: JP-BAYER-2013-120996

PATIENT
  Age: 84 Year
  Sex: Female
  Weight: 33 kg

DRUGS (4)
  1. AVELOX [Suspect]
     Indication: PNEUMONIA
     Dosage: 400 MG, QD
     Route: 048
     Dates: start: 20130726, end: 20130728
  2. PURSENNID [Concomitant]
     Dosage: UNK
     Route: 048
  3. METHYCOBAL [Concomitant]
     Dosage: UNK
  4. RISUMIC [Concomitant]
     Dosage: UNK
     Route: 048

REACTIONS (2)
  - Dyskinesia [Recovered/Resolved]
  - Convulsion [Recovered/Resolved]
